FAERS Safety Report 9331714 (Version 1)
Quarter: 2013Q2

REPORT INFORMATION
  Report Type: Report from Study
  Country: GB (occurrence: GB)
  Receive Date: 20130605
  Receipt Date: 20130605
  Transmission Date: 20140414
  Serious: Yes (Hospitalization)
  Sender: FDA-Public Use
  Company Number: GB-BAYER-2013-069142

PATIENT
  Age: 66 Year
  Sex: Female

DRUGS (1)
  1. BETAFERON [Suspect]
     Indication: MULTIPLE SCLEROSIS
     Dosage: 250 ?G, QOD
     Route: 058

REACTIONS (3)
  - Cholecystitis [Recovered/Resolved]
  - Pancreatitis [Recovered/Resolved]
  - Blood test abnormal [None]
